FAERS Safety Report 9239801 (Version 3)
Quarter: 2013Q2

REPORT INFORMATION
  Report Type: Spontaneous
  Country: JP (occurrence: JP)
  Receive Date: 20130418
  Receipt Date: 20130524
  Transmission Date: 20140414
  Serious: Yes (Death, Hospitalization)
  Sender: FDA-Public Use
  Company Number: JP-B.I. PHARMACEUTICALS,INC./RIDGEFIELD-2013-BI-10247NB

PATIENT
  Age: 92 Year
  Sex: Female

DRUGS (2)
  1. PRAZAXA [Suspect]
     Dosage: 220 MG
     Route: 048
  2. PLETAAL [Suspect]
     Route: 065

REACTIONS (5)
  - Haemorrhage [Fatal]
  - Haemorrhagic anaemia [Fatal]
  - Haemorrhage subcutaneous [Fatal]
  - Shock haemorrhagic [Fatal]
  - Cardiac failure [Fatal]
